FAERS Safety Report 13106816 (Version 1)
Quarter: 2017Q1

REPORT INFORMATION
  Report Type: Spontaneous
  Country: US (occurrence: US)
  Receive Date: 20170111
  Receipt Date: 20170111
  Transmission Date: 20170428
  Serious: Yes (Death)
  Sender: FDA-Public Use
  Company Number: US-PERRIGO-17US000383

PATIENT
  Age: 42 Year
  Sex: Female

DRUGS (6)
  1. ACETAMINOPHEN. [Suspect]
     Active Substance: ACETAMINOPHEN
     Indication: COMPLETED SUICIDE
     Dosage: UNKNOWN, UNKNOWN
     Route: 048
  2. HYDROCHLOROTHIAZIDE W/TRIAMTERENE [Suspect]
     Active Substance: HYDROCHLOROTHIAZIDE\TRIAMTERENE
     Indication: COMPLETED SUICIDE
     Dosage: UNKNOWN, UNKNOWN
     Route: 048
  3. ALCOHOL. [Suspect]
     Active Substance: ALCOHOL
     Indication: COMPLETED SUICIDE
     Dosage: UNKNOWN, UNKNOWN
     Route: 048
  4. BISOPROLOL [Suspect]
     Active Substance: BISOPROLOL
     Indication: COMPLETED SUICIDE
     Dosage: UNKNOWN, UNKNOWN
     Route: 048
  5. TRAZODONE [Suspect]
     Active Substance: TRAZODONE HYDROCHLORIDE
     Indication: COMPLETED SUICIDE
     Dosage: UNKNOWN, UNKNOWN
     Route: 048
  6. NIFEDIPINE XL [Suspect]
     Active Substance: NIFEDIPINE
     Indication: COMPLETED SUICIDE
     Dosage: UNKNOWN, UNKNOWN
     Route: 048

REACTIONS (1)
  - Death [Fatal]
